FAERS Safety Report 5719558-5 (Version None)
Quarter: 2008Q2

REPORT INFORMATION
  Report Type: 
  Country: None (occurrence: None)
  Receive Date: 20080423
  Receipt Date: 20070606
  Transmission Date: 20081010
  Serious: Yes (Other)
  Sender: FDA-Public Use
  Company Number: 238826

PATIENT
  Age: 47 Year
  Sex: Male

DRUGS (2)
  1. AVASTIN [Suspect]
     Indication: METASTATIC RENAL CELL CARCINOMA
     Dosage: 10 MG/KG, Q2W, INTRAVENOUS
     Route: 042
     Dates: start: 20050101
  2. TARCEVA [Suspect]
     Indication: METASTATIC RENAL CELL CARCINOMA
     Dosage: 150 MG, QD, ORAL
     Route: 048
     Dates: start: 20050101

REACTIONS (1)
  - DISEASE PROGRESSION [None]
